FAERS Safety Report 24126413 (Version 1)
Quarter: 2024Q3

REPORT INFORMATION
  Report Type: Report from Study
  Country: AR (occurrence: AR)
  Receive Date: 20240723
  Receipt Date: 20240723
  Transmission Date: 20241016
  Serious: Yes (Hospitalization, Other)
  Sender: NOVARTIS
  Company Number: AR-002147023-NVSC2022AR279045

PATIENT
  Age: 23 Year
  Sex: Male

DRUGS (3)
  1. KESIMPTA [Suspect]
     Active Substance: OFATUMUMAB
     Indication: Multiple sclerosis
     Dosage: 20 MG, QMO
     Route: 058
     Dates: start: 20220907
  2. KESIMPTA [Suspect]
     Active Substance: OFATUMUMAB
     Dosage: 20 MG, QD
     Route: 058
  3. KESIMPTA [Suspect]
     Active Substance: OFATUMUMAB
     Dosage: 20 MG, QMO
     Route: 058

REACTIONS (12)
  - Arthropod bite [Unknown]
  - Peripheral swelling [Unknown]
  - Abscess limb [Unknown]
  - Immunosuppression [Unknown]
  - Furuncle [Unknown]
  - Fatigue [Unknown]
  - Fear [Unknown]
  - Insomnia [Unknown]
  - Sensory loss [Not Recovered/Not Resolved]
  - Hypoaesthesia [Unknown]
  - Product use issue [Unknown]
  - Limb discomfort [Unknown]

NARRATIVE: CASE EVENT DATE: 20230101
